FAERS Safety Report 15739537 (Version 1)
Quarter: 2018Q4

REPORT INFORMATION
  Report Type: Spontaneous
  Country: US (occurrence: US)
  Receive Date: 20181219
  Receipt Date: 20181219
  Transmission Date: 20190205
  Serious: No
  Sender: FDA-Public Use
  Company Number: US-ALLERGAN-1832773US

PATIENT
  Age: 72 Year
  Sex: Female

DRUGS (2)
  1. BYSTOLIC [Suspect]
     Active Substance: NEBIVOLOL HYDROCHLORIDE
     Indication: HYPERTENSION
     Dosage: 5 MG, QD
     Route: 048
     Dates: start: 2017
  2. BYSTOLIC [Suspect]
     Active Substance: NEBIVOLOL HYDROCHLORIDE
     Indication: EXTRASYSTOLES

REACTIONS (5)
  - Blood pressure decreased [Unknown]
  - Trichorrhexis [Not Recovered/Not Resolved]
  - Sensory disturbance [Unknown]
  - Wrong technique in product usage process [Unknown]
  - Dizziness [Unknown]
